FAERS Safety Report 7288737-0 (Version None)
Quarter: 2011Q1

REPORT INFORMATION
  Report Type: 
  Country: None (occurrence: None)
  Receive Date: 20110211
  Receipt Date: 20110203
  Transmission Date: 20110831
  Serious: Yes (Other)
  Sender: FDA-Public Use
  Company Number: PHHY2010US80989

PATIENT
  Sex: Female
  Weight: 89.5 kg

DRUGS (2)
  1. FEMARA [Suspect]
     Dosage: 2.5 MG, QD
     Route: 048
  2. ANTIBIOTICS [Concomitant]
     Dosage: UNK

REACTIONS (2)
  - PNEUMONIA PRIMARY ATYPICAL [None]
  - LUNG INFILTRATION [None]
